FAERS Safety Report 6358380-6 (Version None)
Quarter: 2009Q3

REPORT INFORMATION
  Report Type: 
  Country: None (occurrence: None)
  Receive Date: 20090911
  Receipt Date: 20090514
  Transmission Date: 20100115
  Serious: Yes (Hospitalization)
  Sender: FDA-Public Use
  Company Number: WAES 0905GBR00046

PATIENT
  Age: 55 Year
  Sex: Female

DRUGS (9)
  1. JANUVIA [Suspect]
     Dosage: 100 MG/DAILY PO
     Route: 048
     Dates: start: 20080918
  2. ASPIRIN [Concomitant]
  3. BUPRENORPHINE HCL [Concomitant]
  4. CITALOPRAM [Concomitant]
  5. DIPYRIDAMOLE [Concomitant]
  6. FUROSEMIDE [Concomitant]
  7. ISOSORBIDE MONONITRATE [Concomitant]
  8. OLANZAPINE [Concomitant]
  9. OXYBUTYNIN CHLORIDE [Concomitant]

REACTIONS (2)
  - CALCIUM IONISED INCREASED [None]
  - DYSPNOEA [None]
